FAERS Safety Report 9404928 (Version 1)
Quarter: 2013Q3

REPORT INFORMATION
  Report Type: Spontaneous
  Country: US (occurrence: US)
  Receive Date: 20130717
  Receipt Date: 20130717
  Transmission Date: 20140515
  Serious: Yes (Other)
  Sender: FDA-Public Use
  Company Number: US-BRISTOL-MYERS SQUIBB COMPANY-18978072

PATIENT
  Age: 8 Decade
  Sex: Male

DRUGS (1)
  1. YERVOY [Suspect]
     Indication: METASTATIC MALIGNANT MELANOMA
     Dosage: RECEIVED 3 DOSES

REACTIONS (3)
  - Colitis [Unknown]
  - Hypopituitarism [Unknown]
  - Performance status decreased [Unknown]
